FAERS Safety Report 8247167-5 (Version None)
Quarter: 2012Q1

REPORT INFORMATION
  Report Type: 
  Country: None (occurrence: None)
  Receive Date: 20120329
  Receipt Date: 20120329
  Transmission Date: 20120608
  Serious: No
  Sender: FDA-Public Use
  Company Number: None

PATIENT
  Sex: Female
  Weight: 74.8435 kg

DRUGS (1)
  1. RESTASIS [Suspect]
     Indication: DRY EYE
     Dosage: 0.4 ML - VIAL TWICE A DAY USE ONLY ONCE THEN THROW AWAY
     Dates: start: 20120205, end: 20120209

REACTIONS (2)
  - EYELID OEDEMA [None]
  - URTICARIA [None]
